FAERS Safety Report 6973995-X (Version None)
Quarter: 2010Q3

REPORT INFORMATION
  Report Type: 
  Country: None (occurrence: None)
  Receive Date: 20100907
  Receipt Date: 20091222
  Transmission Date: 20110219
  Serious: Yes (Other)
  Sender: FDA-Public Use
  Company Number: LEO-2010-00797

PATIENT
  Age: 47 Year
  Sex: Female

DRUGS (2)
  1. DOVONEX [Suspect]
     Indication: PSORIASIS
     Dosage: 2 APPLICATION (2 IN 1 D), TOPICAL
     Route: 061
     Dates: start: 20000101
  2. TACLONEX [Concomitant]

REACTIONS (2)
  - PRODUCT CONTAINER ISSUE [None]
  - SKIN LACERATION [None]
